FAERS Safety Report 10289658 (Version 1)
Quarter: 2014Q3

REPORT INFORMATION
  Report Type: Spontaneous
  Country: US (occurrence: US)
  Receive Date: 20140710
  Receipt Date: 20140710
  Transmission Date: 20150326
  Serious: Yes (Other)
  Sender: FDA-Public Use
  Company Number: US-BAYER-2014-099581

PATIENT
  Age: 66 Year
  Sex: Female

DRUGS (4)
  1. CALTRATE [CALCIUM CARBONATE] [Concomitant]
  2. GAS-X [Concomitant]
     Active Substance: DIMETHICONE
  3. BAYER GENUINE ASPIRIN [Suspect]
     Active Substance: ASPIRIN
     Dosage: 1 DF, PRN
     Route: 048
  4. PREVACID [Concomitant]
     Active Substance: LANSOPRAZOLE

REACTIONS (2)
  - Syncope [Recovered/Resolved]
  - Rectal haemorrhage [Recovered/Resolved]
